FAERS Safety Report 12727556 (Version 2)
Quarter: 2017Q1

REPORT INFORMATION
  Report Type: Spontaneous
  Country: NO (occurrence: NO)
  Receive Date: 20160909
  Receipt Date: 20170125
  Transmission Date: 20170428
  Serious: Yes (Death, Other)
  Sender: FDA-Public Use
  Company Number: NO-SUN PHARMACEUTICAL INDUSTRIES LTD-2016R1-123733

PATIENT
  Sex: Male

DRUGS (1)
  1. CITALOPRAM [Suspect]
     Active Substance: CITALOPRAM HYDROBROMIDE
     Indication: PRODUCT USED FOR UNKNOWN INDICATION
     Dosage: UNK
     Route: 065

REACTIONS (9)
  - Completed suicide [Fatal]
  - Nightmare [Unknown]
  - Psychiatric symptom [Unknown]
  - Pain [Unknown]
  - Streptokinase antibody increased [Unknown]
  - Decreased interest [Unknown]
  - Palpitations [Unknown]
  - Personality change [Unknown]
  - Social avoidant behaviour [Unknown]
